FAERS Safety Report 9012144 (Version 1)
Quarter: 2012Q4

REPORT INFORMATION
  Report Type: Spontaneous
  Country: US (occurrence: None)
  Receive Date: 20121227
  Receipt Date: 20121227
  Transmission Date: 20130627
  Serious: Yes (Other)
  Sender: FDA-Public Use
  Company Number: 1538514

PATIENT
  Age: 21 Year
  Sex: Male

DRUGS (4)
  1. VINCRISTINE SULFATE [Suspect]
     Indication: WILMS TUMOR
  2. DACTINOMYCIN [Suspect]
     Indication: WILMS TUMOR
  3. DOXORUBICIN [Suspect]
     Indication: WILMS TUMOR
  4. THERAPEUTIC RADIOPHARMACEUTICALS [Suspect]
     Indication: WILMS TUMOR

REACTIONS (1)
  - Rhabdomyoma [None]
